FAERS Safety Report 12133731 (Version 3)
Quarter: 2016Q1

REPORT INFORMATION
  Report Type: Spontaneous
  Country: FR (occurrence: FR)
  Receive Date: 20160301
  Receipt Date: 20160323
  Transmission Date: 20160526
  Serious: Yes (Other)
  Sender: FDA-Public Use
  Company Number: FR-EMCURE-000831

PATIENT
  Age: 68 Year
  Sex: Male

DRUGS (4)
  1. BICNU [Suspect]
     Active Substance: CARMUSTINE
     Indication: DIFFUSE LARGE B-CELL LYMPHOMA
     Dosage: 560 MG AT D-7 IN A SINGLE INTAKE IN ONE HOUR (I.E 668 ML AT TOTAL)??STRENGTH: 300 MG/M2
     Route: 042
     Dates: start: 20160210, end: 20160210
  2. ETOPOSIDE. [Concomitant]
     Active Substance: ETOPOSIDE
     Indication: DIFFUSE LARGE B-CELL LYMPHOMA
     Dosage: 375 MG FROM D-6 TO D-3?STRENGTH: 200 MG/M2
  3. MELPHALAN [Concomitant]
     Active Substance: MELPHALAN
     Indication: DIFFUSE LARGE B-CELL LYMPHOMA
     Dosage: STRENGTH: 140 MG/M2, 260 MG AT D-2
  4. CYTARABINE/CYTARABINE HYDROCHLORIDE/CYTARABINE OCFOSFATE [Concomitant]
     Indication: DIFFUSE LARGE B-CELL LYMPHOMA
     Dosage: STRENGTH: 400 MG/M2, 750 MG FROM D-6 TO D-3

REACTIONS (1)
  - Anaphylactic reaction [Recovered/Resolved]

NARRATIVE: CASE EVENT DATE: 20160210
